FAERS Safety Report 10779072 (Version 6)
Quarter: 2015Q2

REPORT INFORMATION
  Report Type: Spontaneous
  Country: US (occurrence: US)
  Receive Date: 20150210
  Receipt Date: 20150629
  Transmission Date: 20150821
  Serious: Yes (Life-Threatening, Hospitalization, Disabling)
  Sender: FDA-Public Use
  Company Number: US-JNJFOC-20150120355

PATIENT
  Age: 86 Year
  Sex: Male
  Weight: 73.94 kg

DRUGS (28)
  1. HYDRALAZINE [Suspect]
     Active Substance: HYDRALAZINE HYDROCHLORIDE
     Indication: PRODUCT USED FOR UNKNOWN INDICATION
     Route: 048
  2. HYDRALAZINE [Suspect]
     Active Substance: HYDRALAZINE HYDROCHLORIDE
     Indication: PRODUCT USED FOR UNKNOWN INDICATION
     Dosage: ADMINISTERED WITH 25 MG TABLET FOR TOTAL DOSE O 75 MG
     Route: 048
  3. PSYLLIUM HUSK [Concomitant]
     Active Substance: PSYLLIUM HUSK
     Route: 048
  4. TORSEMIDE. [Concomitant]
     Active Substance: TORSEMIDE
     Route: 048
  5. TORSEMIDE. [Concomitant]
     Active Substance: TORSEMIDE
     Dosage: 3 TABLETS BY MOUTH IN MORNING
     Route: 048
     Dates: start: 20141217
  6. WARFARIN [Concomitant]
     Active Substance: WARFARIN
     Dosage: UPTO 3 TABLETS DAILY, 5 MG WEDNESDAY AND 7.5 MG OTHER DAYS
     Route: 048
  7. PREDNISONE. [Suspect]
     Active Substance: PREDNISONE
     Indication: PRODUCT USED FOR UNKNOWN INDICATION
     Route: 048
  8. METAMUCIL [Concomitant]
     Active Substance: PLANTAGO SEED
     Indication: PRODUCT USED FOR UNKNOWN INDICATION
     Route: 048
  9. LUPRON [Concomitant]
     Active Substance: LEUPROLIDE ACETATE
     Route: 058
  10. DOXAZOSIN [Concomitant]
     Active Substance: DOXAZOSIN\DOXAZOSIN MESYLATE
     Dosage: ADMINISTERED AT BED TIME
     Route: 048
  11. TIMOLOL MALEATE. [Concomitant]
     Active Substance: TIMOLOL MALEATE
     Dosage: 1 DROP BOTH EYES Q AM
     Route: 047
  12. DIOVAN [Concomitant]
     Active Substance: VALSARTAN
     Route: 048
  13. ASPIRIN. [Concomitant]
     Active Substance: ASPIRIN
     Indication: PRODUCT USED FOR UNKNOWN INDICATION
     Dosage: 400  GM
     Route: 065
     Dates: start: 20110613
  14. ACETAMINOPHEN. [Concomitant]
     Active Substance: ACETAMINOPHEN
     Indication: PRODUCT USED FOR UNKNOWN INDICATION
     Dosage: 1 TO 2 TABLETS EVERY 4 TO 6 HOURS
     Route: 048
  15. ASPIRIN. [Concomitant]
     Active Substance: ASPIRIN
     Indication: PRODUCT USED FOR UNKNOWN INDICATION
     Route: 065
     Dates: start: 20140204
  16. PREDNISONE. [Suspect]
     Active Substance: PREDNISONE
     Indication: PRODUCT USED FOR UNKNOWN INDICATION
     Route: 048
  17. LANTUS SOLOSTAR [Concomitant]
     Active Substance: INSULIN GLARGINE
     Dosage: 20 UNITS SUBCUTANEOUSLY
     Route: 058
  18. AMMONIUM LACTATE. [Concomitant]
     Active Substance: AMMONIUM LACTATE
     Indication: PRODUCT USED FOR UNKNOWN INDICATION
     Dosage: 400  GM
     Route: 065
  19. ASPIRIN. [Concomitant]
     Active Substance: ASPIRIN
     Indication: PRODUCT USED FOR UNKNOWN INDICATION
     Dosage: 400  GM
     Route: 065
     Dates: start: 20120627
  20. VITAMIN D3 [Concomitant]
     Active Substance: CHOLECALCIFEROL
     Route: 048
  21. WARFARIN [Concomitant]
     Active Substance: WARFARIN
     Dosage: UPTO 3 TABLETS DAILY, 5 MG WEDNESDAY AND 7.5 MG OTHER DAYS
     Route: 048
     Dates: start: 20140317
  22. SPIRONOLACTONE. [Concomitant]
     Active Substance: SPIRONOLACTONE
     Indication: PRODUCT USED FOR UNKNOWN INDICATION
     Dosage: 1 TO 2 TABLETS EVERY 4 TO 6 HOURS
     Route: 065
  23. LUPRON [Concomitant]
     Active Substance: LEUPROLIDE ACETATE
     Dosage: 1 MG/0.2 ML
     Route: 058
  24. AMLODIPINE [Concomitant]
     Active Substance: AMLODIPINE BESYLATE
     Indication: PRODUCT USED FOR UNKNOWN INDICATION
     Route: 048
  25. METFORMIN [Concomitant]
     Active Substance: METFORMIN HYDROCHLORIDE
     Route: 048
  26. FERROUS SULFATE [Concomitant]
     Active Substance: FERROUS SULFATE\FERROUS SULFATE, DRIED
     Indication: PRODUCT USED FOR UNKNOWN INDICATION
     Dosage: 1 TO 2 TABLETS EVERY 4 TO 6 HOURS
     Route: 048
  27. ZYTIGA [Suspect]
     Active Substance: ABIRATERONE ACETATE
     Indication: PROSTATE CANCER
     Route: 048
     Dates: start: 20120101, end: 20141219
  28. LUMIGAN [Concomitant]
     Active Substance: BIMATOPROST
     Dosage: 1 DROP BOTH EYES AT BED TIME
     Route: 047

REACTIONS (58)
  - Heart rate increased [Recovering/Resolving]
  - Dysuria [Unknown]
  - Right ventricular failure [Recovering/Resolving]
  - ECG signs of ventricular hypertrophy [Recovering/Resolving]
  - Dyspnoea [Unknown]
  - Pain in extremity [Unknown]
  - Hepatic steatosis [Unknown]
  - Atrial flutter [Recovering/Resolving]
  - Cardiac disorder [Recovering/Resolving]
  - Blood creatinine increased [Unknown]
  - Cyst [Unknown]
  - Atrial fibrillation [Recovering/Resolving]
  - Electrocardiogram QRS complex prolonged [Recovering/Resolving]
  - Hypertension [Recovering/Resolving]
  - Dizziness [Unknown]
  - Pyrexia [Recovering/Resolving]
  - Bundle branch block left [Recovering/Resolving]
  - Sinus bradycardia [Recovering/Resolving]
  - Pulmonary oedema [Unknown]
  - Prostatic specific antigen increased [Recovering/Resolving]
  - Conduction disorder [Recovering/Resolving]
  - QRS axis abnormal [Recovering/Resolving]
  - Erythema [Unknown]
  - Blood urea increased [Unknown]
  - Tricuspid valve incompetence [Recovering/Resolving]
  - Abscess limb [Unknown]
  - Faecal volume decreased [Unknown]
  - Chills [Unknown]
  - Cough [Recovering/Resolving]
  - Weight decreased [Unknown]
  - Hypokalaemia [Unknown]
  - Asthenia [Recovering/Resolving]
  - Vomiting [Unknown]
  - Pulmonary hypertension [Recovering/Resolving]
  - Internal haemorrhage [Recovering/Resolving]
  - Nervous system disorder [Unknown]
  - Nodule [Unknown]
  - Blood urine present [Unknown]
  - Cardiac failure congestive [Recovering/Resolving]
  - Bundle branch block right [Recovering/Resolving]
  - Transaminases increased [Unknown]
  - Diarrhoea [Recovering/Resolving]
  - Hyperkeratosis [Unknown]
  - Cellulitis [Not Recovered/Not Resolved]
  - Pollakiuria [Unknown]
  - Chest pain [Recovering/Resolving]
  - Fatigue [Recovering/Resolving]
  - Drug dose omission [Unknown]
  - Sneezing [Unknown]
  - Therapeutic response decreased [Unknown]
  - Oedema peripheral [Unknown]
  - Bradycardia [Recovering/Resolving]
  - Hernia [Unknown]
  - Hypotension [Recovering/Resolving]
  - Thrombocytopenia [Unknown]
  - Epistaxis [Unknown]
  - Incorrect dose administered [Unknown]
  - Constipation [Unknown]

NARRATIVE: CASE EVENT DATE: 20120110
